FAERS Safety Report 17920054 (Version 2)
Quarter: 2020Q3

REPORT INFORMATION
  Report Type: Report from Study
  Country: US (occurrence: US)
  Receive Date: 20200620
  Receipt Date: 20200717
  Transmission Date: 20201103
  Serious: Yes (Death, Hospitalization)
  Sender: FDA-Public Use
  Company Number: US-HLS-202000651

PATIENT
  Age: 51 Year
  Sex: Male
  Weight: 105 kg

DRUGS (1)
  1. CLOZARIL [Suspect]
     Active Substance: CLOZAPINE
     Indication: SCHIZOPHRENIA
     Dosage: 100MG
     Route: 048
     Dates: start: 20120127, end: 20200618

REACTIONS (3)
  - Death [Fatal]
  - Mental disorder [Unknown]
  - Diabetic complication [Unknown]

NARRATIVE: CASE EVENT DATE: 20200618
